FAERS Safety Report 6787540-5 (Version None)
Quarter: 2010Q2

REPORT INFORMATION
  Report Type: 
  Country: None (occurrence: None)
  Receive Date: 20100623
  Receipt Date: 20080716
  Transmission Date: 20101027
  Serious: Yes (Other)
  Sender: FDA-Public Use
  Company Number: US-PFIZER INC-2005089099

PATIENT
  Sex: Female
  Weight: 122 kg

DRUGS (1)
  1. DEPO-PROVERA SUSPENSION/INJ [Suspect]
     Indication: CONTRACEPTION
     Dosage: 1ST INJECTION, EVERY 3 MONTHS
     Route: 030
     Dates: start: 20050125, end: 20050125

REACTIONS (11)
  - AMENORRHOEA [None]
  - BREAST TENDERNESS [None]
  - DECREASED APPETITE [None]
  - DIZZINESS [None]
  - DRUG INEFFECTIVE [None]
  - FATIGUE [None]
  - METRORRHAGIA [None]
  - NAUSEA [None]
  - UNINTENDED PREGNANCY [None]
  - VOMITING [None]
  - WEIGHT DECREASED [None]
